FAERS Safety Report 23221040 (Version 3)
Quarter: 2024Q1

REPORT INFORMATION
  Report Type: Report from Study
  Country: CO (occurrence: CO)
  Receive Date: 20231123
  Receipt Date: 20240206
  Transmission Date: 20240410
  Serious: Yes (Other)
  Sender: FDA-Public Use
  Company Number: CO-BAYER-2023A166710

PATIENT
  Sex: Female

DRUGS (1)
  1. EYLEA [Suspect]
     Active Substance: AFLIBERCEPT
     Indication: Diabetic retinal oedema
     Dosage: 2 MG, MONTHLY FOR 5 MONTHS, AND THEN EVERY 2 MONTHS; BOTH EYES, SOL FOR INJ; 40 MG/ML
     Route: 031
     Dates: start: 20220802

REACTIONS (10)
  - Blindness [Not Recovered/Not Resolved]
  - Visual acuity reduced [Unknown]
  - Somnolence [Unknown]
  - Depressed mood [Unknown]
  - Headache [Unknown]
  - Malaise [Unknown]
  - Blood glucose increased [Unknown]
  - Vision blurred [Unknown]
  - Vitreous floaters [Unknown]
  - Eye pain [Unknown]

NARRATIVE: CASE EVENT DATE: 20230101
